FAERS Safety Report 4838466-5 (Version None)
Quarter: 2005Q4

REPORT INFORMATION
  Report Type: 
  Country: None (occurrence: None)
  Receive Date: 20051129
  Receipt Date: 20051025
  Transmission Date: 20060501
  Serious: Yes (Hospitalization, Other)
  Sender: FDA-Public Use
  Company Number: PHRM2005FR02837

PATIENT
  Age: 59 Year
  Sex: Female
  Weight: 69 kg

DRUGS (2)
  1. LEPONEX [Suspect]
     Indication: SCHIZOPHRENIA
     Dosage: 400MG, DAILY
     Route: 048
     Dates: start: 19990101
  2. SOLIAN [Suspect]
     Dosage: UNK, UNK
     Dates: start: 20050601

REACTIONS (4)
  - HYPOGAMMAGLOBULINAEMIA [None]
  - LUNG DISORDER [None]
  - NASOPHARYNGITIS [None]
  - SINUSITIS [None]
